FAERS Safety Report 6901912-7 (Version None)
Quarter: 2010Q3

REPORT INFORMATION
  Report Type: 
  Country: None (occurrence: None)
  Receive Date: 20100803
  Receipt Date: 20081031
  Transmission Date: 20110219
  Serious: No
  Sender: FDA-Public Use
  Company Number: US-PFIZER INC-2008026976

PATIENT
  Sex: Male

DRUGS (12)
  1. LYRICA [Suspect]
     Indication: NEURALGIA
     Dates: start: 20070401
  2. LYRICA [Suspect]
     Indication: PROCEDURAL PAIN
  3. PLAVIX [Concomitant]
  4. METOPROLOL [Concomitant]
  5. COREG [Concomitant]
  6. LEXAPRO [Concomitant]
  7. BACTRIM [Concomitant]
  8. ULTRAM [Concomitant]
  9. OXYCONTIN [Concomitant]
  10. DRUG, UNSPECIFIED [Concomitant]
  11. OXYCODONE [Concomitant]
  12. VANCOMYCIN [Concomitant]

REACTIONS (4)
  - DRUG WITHDRAWAL SYNDROME [None]
  - NAUSEA [None]
  - TREMOR [None]
  - VOMITING [None]
